FAERS Safety Report 25855305 (Version 2)
Quarter: 2025Q4

REPORT INFORMATION
  Report Type: Report from Study
  Country: US (occurrence: US)
  Receive Date: 20250927
  Receipt Date: 20251031
  Transmission Date: 20260118
  Serious: No
  Sender: GSK
  Company Number: US-GSK-US2025113867

PATIENT
  Age: 70 Year
  Sex: Female

DRUGS (1)
  1. DOSTARLIMAB [Suspect]
     Active Substance: DOSTARLIMAB
     Indication: Endometrial cancer
     Dosage: UNK, Q6W
     Dates: start: 202501

REACTIONS (1)
  - Decreased appetite [Recovered/Resolved]

NARRATIVE: CASE EVENT DATE: 20250101
